FAERS Safety Report 5353736-2 (Version None)
Quarter: 2007Q2

REPORT INFORMATION
  Report Type: 
  Country: None (occurrence: None)
  Receive Date: 20070612
  Receipt Date: 20070531
  Transmission Date: 20071010
  Serious: Yes (Other)
  Sender: FDA-Public Use
  Company Number: CA-KINGPHARMUSA00001-K200700670

PATIENT

DRUGS (1)
  1. EPIPEN [Suspect]
     Dosage: .3 MG, UNK
     Dates: start: 20070530, end: 20070530

REACTIONS (6)
  - ACCIDENTAL EXPOSURE [None]
  - APPLICATION SITE PALLOR [None]
  - HYPOAESTHESIA [None]
  - INCORRECT ROUTE OF DRUG ADMINISTRATION [None]
  - INJECTION SITE COLDNESS [None]
  - INJECTION SITE PAIN [None]
